FAERS Safety Report 24114848 (Version 1)
Quarter: 2024Q3

REPORT INFORMATION
  Report Type: Spontaneous
  Country: US (occurrence: US)
  Receive Date: 20240721
  Receipt Date: 20240721
  Transmission Date: 20241017
  Serious: No
  Sender: NOVO NORDISK
  Company Number: US-NOVOPROD-1083665

PATIENT
  Age: 73 Year
  Sex: Female

DRUGS (1)
  1. WEGOVY [Suspect]
     Active Substance: SEMAGLUTIDE
     Indication: Obesity
     Dosage: 1 MG
     Route: 058

REACTIONS (5)
  - Food craving [Recovered/Resolved]
  - Hunger [Unknown]
  - Weight loss poor [Unknown]
  - Nausea [Recovered/Resolved]
  - Therapeutic product effect variable [Unknown]
